FAERS Safety Report 4661386-6 (Version None)
Quarter: 2005Q2

REPORT INFORMATION
  Report Type: 
  Country: None (occurrence: None)
  Receive Date: 20050512
  Receipt Date: 20050125
  Transmission Date: 20051028
  Serious: Yes (Life-Threatening, Hospitalization, Disabling, Other)
  Sender: FDA-Public Use
  Company Number: 05-05-0777

PATIENT
  Age: 29 Year
  Sex: Female
  Weight: 55 kg

DRUGS (3)
  1. MIRTAZAPINE [Suspect]
     Indication: DEPRESSION
     Dosage: 1 OD
     Dates: start: 20050118, end: 20050119
  2. PARACETAMOL [Suspect]
     Dosage: 6 TABLETS
  3. ZOPICLONE [Concomitant]

REACTIONS (3)
  - JAUNDICE [None]
  - OVERDOSE [None]
  - PRURITUS [None]
